FAERS Safety Report 8062731-4 (Version None)
Quarter: 2012Q1

REPORT INFORMATION
  Report Type: 
  Country: None (occurrence: None)
  Receive Date: 20120106
  Receipt Date: 20111221
  Transmission Date: 20120608
  Serious: Yes (Other)
  Sender: FDA-Public Use
  Company Number: 2011028066

PATIENT
  Age: 34 Year
  Sex: Female
  Weight: 88.905 kg

DRUGS (40)
  1. CYANO-PLEX (CYANO B-COMPLEX) [Concomitant]
  2. ADDERALL XR 10 [Concomitant]
  3. LORTAB [Concomitant]
  4. MULTIVITAMIN (ACCOMIN MULTIVITAMIN) [Concomitant]
  5. ACYCLOVIR [Concomitant]
  6. HIZENTRA [Suspect]
     Dosage: (10 G 1X/WEEK, 4 SITES OVER 1 HOUR SUBCUTANEOUS)
     Route: 058
     Dates: start: 20100917
  7. HIZENTRA [Suspect]
     Dosage: (4 GM 20 ML ON FOUR SITES OVER ONE HOUR SUBCUTANEOUS)
     Route: 058
  8. TORADOL [Concomitant]
  9. PHENERGAN [Concomitant]
  10. XANAX [Concomitant]
  11. MS CONTIN [Concomitant]
  12. BENADRYL [Concomitant]
  13. MUCINEX ER (GUAIFENESIN) [Concomitant]
  14. PREDNISONE TAB [Concomitant]
  15. HIZENTRA [Suspect]
     Dosage: (2 GM 10 ML ON FOUR SITES OVER ONE HOUR SUBCUTANEOUS)
     Route: 058
  16. FLUVOXAMINE MALEATE (FLUVOXAMINE) [Concomitant]
  17. WELLBUTRIN XL [Concomitant]
  18. DIFIL-G (MUCOSYL) [Concomitant]
  19. CALCIUM [Concomitant]
  20. RECLAST [Concomitant]
  21. REPREXAIN (HYDROCODONE W/IBUPROFEN) [Concomitant]
  22. HIZENTRA [Suspect]
     Dosage: (SUBCUTANEOUS)
     Route: 058
  23. KLOR-CON [Concomitant]
  24. HIZENTRA [Suspect]
     Dosage: (4 GM 20 ML VIAL SUBCUTANEOUS)
     Route: 058
     Dates: start: 20100917
  25. SINGULAIR [Concomitant]
  26. PROMETHAZINE [Concomitant]
  27. HIZENTRA [Suspect]
     Indication: IMMUNODEFICIENCY COMMON VARIABLE
     Dosage: (10 G 1X/WEEK, 2 GM 10 ML VIAL;50 ML (12.5 ML PER SITE) OVER APPROX 1 HOURS SUBCUTANEOUS
     Route: 058
     Dates: start: 20110331
  28. LASIX [Concomitant]
  29. ZINC SULFATE [Concomitant]
  30. MAGNESIUM [Concomitant]
  31. PROAIR HFA (PROCATEROL HYDROCHLORIDE) [Concomitant]
  32. MAXALT MLT (RIZATRIPTAN BENZOATE) [Concomitant]
  33. TOPAMAX [Concomitant]
  34. BACLOFEN [Concomitant]
  35. PANTANASE (OLOPATADINE) [Concomitant]
  36. FLOVENT [Concomitant]
  37. GABITRIL [Concomitant]
  38. LOVAZA [Concomitant]
  39. TRINSICON [Concomitant]
  40. AVELOX [Concomitant]

REACTIONS (7)
  - PANIC ATTACK [None]
  - INCISION SITE PAIN [None]
  - INFUSION RELATED REACTION [None]
  - SINUSITIS [None]
  - CHEST DISCOMFORT [None]
  - DYSPNOEA [None]
  - PNEUMONIA [None]
